FAERS Safety Report 4341078-3 (Version None)
Quarter: 2004Q2

REPORT INFORMATION
  Report Type: 
  Country: None (occurrence: None)
  Receive Date: 20040419
  Receipt Date: 20040316
  Transmission Date: 20050107
  Serious: Yes (Disabling)
  Sender: FDA-Public Use
  Company Number: AU-ROCHE-361712

PATIENT
  Age: 58 Year
  Sex: Female
  Weight: 120 kg

DRUGS (5)
  1. NEOTIGASON [Suspect]
     Indication: PSORIASIS
     Route: 048
     Dates: start: 20040311, end: 20040313
  2. NEOTIGASON [Suspect]
     Route: 048
     Dates: start: 20040207
  3. NEOTIGASON [Suspect]
     Route: 048
     Dates: start: 20031115, end: 20031215
  4. ORUDIS [Concomitant]
  5. RUBESAL [Concomitant]
     Route: 061

REACTIONS (3)
  - DYSPNOEA [None]
  - DYSPNOEA EXERTIONAL [None]
  - OEDEMA PERIPHERAL [None]
